FAERS Safety Report 6426198-1 (Version None)
Quarter: 2009Q4

REPORT INFORMATION
  Report Type: 
  Country: None (occurrence: None)
  Receive Date: 20091103
  Receipt Date: 20091103
  Transmission Date: 20100525
  Serious: No
  Sender: FDA-Public Use
  Company Number: None

PATIENT
  Age: 54 Year
  Sex: Male

DRUGS (3)
  1. ADENOSINE [Suspect]
     Indication: CARDIAC OPERATION
     Dates: start: 20090122, end: 20090122
  2. ADENOSINE [Suspect]
     Indication: VASCULAR OPERATION
     Dates: start: 20090122, end: 20090122
  3. ADENOSINE [Suspect]
     Dosage: 36 MCG ONCE IV
     Route: 042
     Dates: start: 20090122, end: 20090122

REACTIONS (2)
  - BRONCHOSPASM [None]
  - INFUSION RELATED REACTION [None]
